FAERS Safety Report 6355827-6 (Version None)
Quarter: 2009Q3

REPORT INFORMATION
  Report Type: 
  Country: None (occurrence: None)
  Receive Date: 20090915
  Receipt Date: 20090909
  Transmission Date: 20100115
  Serious: Yes (Other)
  Sender: FDA-Public Use
  Company Number: BR-BAYER-200921536LA

PATIENT
  Age: 0 Hour
  Sex: Female
  Weight: 4.16 kg

DRUGS (2)
  1. BETAFERON [Suspect]
     Indication: MULTIPLE SCLEROSIS
     Route: 064
  2. UTROGESTAN [Concomitant]
     Indication: PREMATURE LABOUR
     Route: 064
     Dates: start: 20090201, end: 20090501

REACTIONS (5)
  - CHOKING [None]
  - HYPERTENSION [None]
  - ISCHAEMIA [None]
  - PREMATURE BABY [None]
  - SMALL FOR DATES BABY [None]
